FAERS Safety Report 10313501 (Version 2)
Quarter: 2014Q4

REPORT INFORMATION
  Report Type: Spontaneous
  Country: US (occurrence: US)
  Receive Date: 20140718
  Receipt Date: 20141022
  Transmission Date: 20150528
  Serious: No
  Sender: FDA-Public Use
  Company Number: US-MYLANLABS-2014S1014119

PATIENT
  Age: 79 Year
  Sex: Female

DRUGS (3)
  1. ESZOPICLONE TABLETS [Suspect]
     Active Substance: ESZOPICLONE
     Indication: INSOMNIA
  2. ESZOPICLONE TABLETS [Suspect]
     Active Substance: ESZOPICLONE
     Dosage: 3 MG,QD AT BEDTIME
     Route: 048
     Dates: start: 201407, end: 20140722
  3. ESZOPICLONE TABLETS [Suspect]
     Active Substance: ESZOPICLONE
     Dosage: 3 MG,QD AT BEDTIME
     Route: 048
     Dates: start: 20140515, end: 201405

REACTIONS (4)
  - Drug ineffective [Not Recovered/Not Resolved]
  - Dysgeusia [Not Recovered/Not Resolved]
  - Somnolence [Not Recovered/Not Resolved]
  - Insomnia [Not Recovered/Not Resolved]

NARRATIVE: CASE EVENT DATE: 20140515
